FAERS Safety Report 14368591 (Version 3)
Quarter: 2018Q3

REPORT INFORMATION
  Report Type: Spontaneous
  Country: US (occurrence: US)
  Receive Date: 20180109
  Receipt Date: 20180820
  Transmission Date: 20181010
  Serious: No
  Sender: FDA-Public Use
  Company Number: US-ACTELION-A-NJ2018-165494

PATIENT
  Age: 55 Year
  Sex: Female

DRUGS (2)
  1. VELETRI [Suspect]
     Active Substance: EPOPROSTENOL
     Indication: PULMONARY ARTERIAL HYPERTENSION
     Dosage: 29 NG/KG, PER MIN
     Route: 042
     Dates: start: 20171208
  2. OPSUMIT [Suspect]
     Active Substance: MACITENTAN
     Indication: PULMONARY ARTERIAL HYPERTENSION
     Dosage: 10 MG, UNK
     Route: 048
     Dates: start: 20170922

REACTIONS (7)
  - Dyspnoea [Unknown]
  - Palpitations [Unknown]
  - Cough [Unknown]
  - Catheter site haemorrhage [Unknown]
  - Catheter site discharge [Unknown]
  - Oedema [Unknown]
  - Unevaluable event [Unknown]

NARRATIVE: CASE EVENT DATE: 201807
